FAERS Safety Report 7010507-9 (Version None)
Quarter: 2010Q3

REPORT INFORMATION
  Report Type: 
  Country: None (occurrence: None)
  Receive Date: 20100923
  Receipt Date: 20100910
  Transmission Date: 20110219
  Serious: Yes (Hospitalization)
  Sender: FDA-Public Use
  Company Number: US-ELI_LILLY_AND_COMPANY-US201009002944

PATIENT
  Sex: Male

DRUGS (4)
  1. GEMZAR [Suspect]
     Dosage: 200 MG, UNK
  2. GEMZAR [Suspect]
     Dosage: 1 G, UNK
  3. ALOXI [Concomitant]
  4. DECADRON [Concomitant]

REACTIONS (1)
  - ILL-DEFINED DISORDER [None]
